FAERS Safety Report 4979001-0 (Version None)
Quarter: 2006Q2

REPORT INFORMATION
  Report Type: 
  Country: None (occurrence: None)
  Receive Date: 20060419
  Receipt Date: 20060419
  Transmission Date: 20061013
  Serious: No
  Sender: FDA-Public Use
  Company Number: None

PATIENT
  Age: 54 Year
  Sex: Female
  Weight: 79.8331 kg

DRUGS (1)
  1. AMBIEN [Suspect]
     Indication: INSOMNIA
     Dosage: 10 MG   WHEN NEEDED   PO
     Route: 048
     Dates: start: 20060124, end: 20060212

REACTIONS (12)
  - ABNORMAL SLEEP-RELATED EVENT [None]
  - DEPRESSED LEVEL OF CONSCIOUSNESS [None]
  - DYSPHAGIA [None]
  - DYSURIA [None]
  - IMPAIRED DRIVING ABILITY [None]
  - IMPAIRED WORK ABILITY [None]
  - MEMORY IMPAIRMENT [None]
  - MUSCLE SPASMS [None]
  - MYOCARDIAL INFARCTION [None]
  - SLEEP TALKING [None]
  - THINKING ABNORMAL [None]
  - WEIGHT INCREASED [None]
